FAERS Safety Report 5227440-5 (Version None)
Quarter: 2007Q1

REPORT INFORMATION
  Report Type: 
  Country: None (occurrence: None)
  Receive Date: 20061201
  Receipt Date: 20061017
  Transmission Date: 20070707
  Serious: No
  Sender: FDA-Public Use
  Company Number: US200610003140

PATIENT
  Age: 36 Year
  Sex: Male

DRUGS (2)
  1. CYMBALTA [Suspect]
     Indication: DEPRESSION
     Dosage: 30 MG, DAILY (1/D)
     Dates: start: 20061016
  2. ATIVAN [Concomitant]

REACTIONS (7)
  - ANXIETY [None]
  - DIZZINESS [None]
  - INSOMNIA [None]
  - NAUSEA [None]
  - PARAESTHESIA ORAL [None]
  - PHARYNGEAL OEDEMA [None]
  - SOMNOLENCE [None]
